FAERS Safety Report 18629909 (Version 1)
Quarter: 2020Q4

REPORT INFORMATION
  Report Type: Spontaneous
  Country: US (occurrence: US)
  Receive Date: 20201217
  Receipt Date: 20201217
  Transmission Date: 20210114
  Serious: No
  Sender: FDA-Public Use
  Company Number: US-OCULAR THERAPEUTIX-2020OCX00027

PATIENT

DRUGS (2)
  1. DEXTENZA [Suspect]
     Active Substance: DEXAMETHASONE
  2. OMIDRIA [Suspect]
     Active Substance: KETOROLAC\PHENYLEPHRINE

REACTIONS (1)
  - Eye inflammation [Not Recovered/Not Resolved]
